FAERS Safety Report 12334300 (Version 1)
Quarter: 2016Q2

REPORT INFORMATION
  Report Type: Spontaneous
  Country: US (occurrence: US)
  Receive Date: 20160504
  Receipt Date: 20160504
  Transmission Date: 20160815
  Serious: No
  Sender: FDA-Public Use
  Company Number: US-ABBVIE-15P-163-1471012-00

PATIENT
  Sex: Female

DRUGS (1)
  1. CREON [Suspect]
     Active Substance: PANCRELIPASE AMYLASE\PANCRELIPASE LIPASE\PANCRELIPASE PROTEASE
     Indication: PRODUCT USED FOR UNKNOWN INDICATION
     Route: 065

REACTIONS (8)
  - Disease complication [Unknown]
  - Social avoidant behaviour [Unknown]
  - General physical health deterioration [Unknown]
  - Loss of employment [Unknown]
  - Dyspepsia [Unknown]
  - Food intolerance [Unknown]
  - Hypophagia [Unknown]
  - Pain [Unknown]
